FAERS Safety Report 7804414-9 (Version None)
Quarter: 2011Q4

REPORT INFORMATION
  Report Type: 
  Country: None (occurrence: None)
  Receive Date: 20111010
  Receipt Date: 20110927
  Transmission Date: 20120403
  Serious: Yes (Hospitalization, Other)
  Sender: FDA-Public Use
  Company Number: US-BAYER-2011-027908

PATIENT
  Age: 48 Year
  Sex: Female

DRUGS (7)
  1. YAZ [Suspect]
     Indication: PREMENSTRUAL SYNDROME
     Dosage: UNK
     Dates: start: 20080501, end: 20091001
  2. BENZONATATE [Concomitant]
     Dosage: 100 MG, UNK
     Dates: start: 20081210
  3. ZITHROMAX [Concomitant]
  4. YAZ [Suspect]
     Indication: MENSTRUATION IRREGULAR
  5. ANTIBIOTICS [Concomitant]
     Route: 042
  6. AZITHROMYCIN [Concomitant]
     Indication: RESPIRATORY TRACT INFECTION
     Dosage: UNK
     Dates: start: 20081210
  7. PANTOPRAZOLE SODIUM [Concomitant]
     Dosage: UNK
     Dates: start: 20081210

REACTIONS (6)
  - CHOLECYSTITIS CHRONIC [None]
  - GALLBLADDER DISORDER [None]
  - DYSPEPSIA [None]
  - ABDOMINAL PAIN UPPER [None]
  - INJURY [None]
  - PAIN [None]
